FAERS Safety Report 10305729 (Version 1)
Quarter: 2014Q3

REPORT INFORMATION
  Report Type: Spontaneous
  Country: US (occurrence: None)
  Receive Date: 20140714
  Receipt Date: 20140714
  Transmission Date: 20150326
  Serious: No
  Sender: FDA-Public Use
  Company Number: None

PATIENT
  Sex: Male
  Weight: 44.72 kg

DRUGS (1)
  1. CLONIDINE HYDROCHLORIDE EXTENDED-RELEASE [Suspect]
     Active Substance: CLONIDINE HYDROCHLORIDE
     Indication: ATTENTION DEFICIT/HYPERACTIVITY DISORDER
     Dates: start: 20130403

REACTIONS (2)
  - Product substitution issue [None]
  - Drug ineffective [None]
